FAERS Safety Report 23593523 (Version 1)
Quarter: 2024Q1

REPORT INFORMATION
  Report Type: Spontaneous
  Country: DE (occurrence: DE)
  Receive Date: 20240304
  Receipt Date: 20240304
  Transmission Date: 20240410
  Serious: Yes (Death, Hospitalization, Disabling, Other)
  Sender: FDA-Public Use
  Company Number: DE-BoehringerIngelheim-2017-BI-064635

PATIENT
  Age: 78 Year
  Sex: Male

DRUGS (40)
  1. AMPICILLIN AND SULBACTAM [Suspect]
     Active Substance: AMPICILLIN SODIUM\SULBACTAM SODIUM
     Indication: Pneumonia
     Dosage: UNK UNK,UNK
     Route: 065
     Dates: start: 20160101
  2. DEXTROMETHORPHAN HYDROBROMIDE [Suspect]
     Active Substance: DEXTROMETHORPHAN HYDROBROMIDE
     Indication: Agitation
     Dosage: 24 MG,QD
     Route: 065
     Dates: start: 20170101
  3. DEXTROMETHORPHAN HYDROBROMIDE [Suspect]
     Active Substance: DEXTROMETHORPHAN HYDROBROMIDE
     Indication: Delirium
     Dosage: 40 MG, DIVIDED INTO 2 DOSAGES
     Route: 065
     Dates: start: 2017
  4. DEXTROMETHORPHAN HYDROBROMIDE [Suspect]
     Active Substance: DEXTROMETHORPHAN HYDROBROMIDE
     Indication: Aggression
     Dosage: DOSE INCREASED, TWO DIVIDED DOSES;
     Route: 065
  5. DRONABINOL [Suspect]
     Active Substance: DRONABINOL
     Indication: Delirium
     Dosage: 15 MG, QD
     Route: 065
     Dates: start: 2016
  6. DRONABINOL [Suspect]
     Active Substance: DRONABINOL
     Indication: Dementia with Lewy bodies
  7. FORMOTEROL [Suspect]
     Active Substance: FORMOTEROL
     Indication: Pneumonia
     Dosage: QD
     Route: 065
     Dates: start: 201601
  8. FLUPENTIXOL [Suspect]
     Active Substance: FLUPENTIXOL
     Indication: Delirium
     Dosage: 20 MG
     Route: 048
  9. FLUPENTIXOL [Suspect]
     Active Substance: FLUPENTIXOL
     Indication: Dementia with Lewy bodies
  10. LORAZEPAM [Suspect]
     Active Substance: LORAZEPAM
     Indication: Dementia with Lewy bodies
     Dosage: 1 DF, QD
     Route: 065
     Dates: start: 20160101
  11. LORAZEPAM [Suspect]
     Active Substance: LORAZEPAM
     Indication: Delirium
     Dosage: UNK UNK,QD
     Route: 065
     Dates: start: 20160101
  12. PAROXETINE [Suspect]
     Active Substance: PAROXETINE
     Indication: Delirium
     Dosage: 10 MG, UNK
     Route: 065
     Dates: start: 2017
  13. PAROXETINE [Suspect]
     Active Substance: PAROXETINE
     Indication: Aggression
  14. QUETIAPINE FUMARATE [Suspect]
     Active Substance: QUETIAPINE FUMARATE
     Indication: Aggression
     Dosage: 100 MG,QD
     Route: 048
     Dates: start: 20170101
  15. QUETIAPINE FUMARATE [Suspect]
     Active Substance: QUETIAPINE FUMARATE
     Indication: Agitation
     Dosage: 150 MG,QD
     Route: 048
     Dates: start: 20160101
  16. QUETIAPINE FUMARATE [Suspect]
     Active Substance: QUETIAPINE FUMARATE
     Indication: Delirium
  17. QUETIAPINE FUMARATE [Suspect]
     Active Substance: QUETIAPINE FUMARATE
     Indication: Dementia with Lewy bodies
  18. SPIRIVA [Suspect]
     Active Substance: TIOTROPIUM BROMIDE MONOHYDRATE
     Indication: Pneumonia
     Dosage: UNK
     Route: 065
     Dates: start: 20160101
  19. AMISULPRIDE [Concomitant]
     Active Substance: AMISULPRIDE
     Indication: Dementia with Lewy bodies
     Dosage: UNK
     Route: 065
  20. ARIPIPRAZOLE [Concomitant]
     Active Substance: ARIPIPRAZOLE
     Indication: Dementia with Lewy bodies
     Dosage: UNK
     Route: 065
  21. BENPERIDOL [Concomitant]
     Active Substance: BENPERIDOL
     Indication: Dementia with Lewy bodies
     Dosage: UNK
     Route: 065
  22. CARBAMAZEPINE [Concomitant]
     Active Substance: CARBAMAZEPINE
     Indication: Dementia with Lewy bodies
     Dosage: UNK
     Route: 065
  23. CLOZAPINE [Concomitant]
     Active Substance: CLOZAPINE
     Indication: Dementia with Lewy bodies
     Dosage: UNK
     Route: 065
  24. DIAZEPAM [Concomitant]
     Active Substance: DIAZEPAM
     Indication: Aggression
     Dosage: UNK, (HIGH DOSE)
     Route: 065
  25. DIAZEPAM [Concomitant]
     Active Substance: DIAZEPAM
     Indication: Delirium
  26. DONEPEZIL [Concomitant]
     Active Substance: DONEPEZIL
     Indication: Aggression
     Dosage: UNK
     Route: 065
  27. DONEPEZIL [Concomitant]
     Active Substance: DONEPEZIL
     Indication: Delirium
  28. DONEPEZIL [Concomitant]
     Active Substance: DONEPEZIL
     Indication: Dementia with Lewy bodies
  29. MIRTAZAPINE [Concomitant]
     Active Substance: MIRTAZAPINE
     Indication: Aggression
     Dosage: UNK, (HIGH DOSE)
     Route: 065
  30. MIRTAZAPINE [Concomitant]
     Active Substance: MIRTAZAPINE
     Indication: Delirium
  31. MIRTAZAPINE [Concomitant]
     Active Substance: MIRTAZAPINE
     Indication: Dementia with Lewy bodies
  32. PIPAMPERONE [Concomitant]
     Active Substance: PIPAMPERONE
     Indication: Dementia with Lewy bodies
     Dosage: UNK
     Route: 065
  33. RISPERIDONE [Concomitant]
     Active Substance: RISPERIDONE
     Indication: Dementia with Lewy bodies
     Dosage: UNK
     Route: 065
  34. RIVASTIGMINE [Concomitant]
     Active Substance: RIVASTIGMINE
     Indication: Delirium
     Dosage: 1 DF, UNK
     Route: 065
  35. RIVASTIGMINE [Concomitant]
     Active Substance: RIVASTIGMINE
     Indication: Aggression
     Dosage: AS HIGH AS TOLERATED BY THE PATIENT
     Route: 065
  36. RIVASTIGMINE [Concomitant]
     Active Substance: RIVASTIGMINE
     Indication: Dementia with Lewy bodies
  37. TRAZODONE [Concomitant]
     Active Substance: TRAZODONE HYDROCHLORIDE
     Indication: Aggression
     Dosage: UNK, (HIGH DOSE)
     Route: 065
  38. TRAZODONE [Concomitant]
     Active Substance: TRAZODONE HYDROCHLORIDE
     Indication: Delirium
  39. TRAZODONE [Concomitant]
     Active Substance: TRAZODONE HYDROCHLORIDE
     Indication: Dementia with Lewy bodies
  40. ZUCLOPENTHIXOL [Concomitant]
     Active Substance: ZUCLOPENTHIXOL
     Indication: Dementia with Lewy bodies
     Route: 065

REACTIONS (14)
  - Completed suicide [Fatal]
  - Hangover [Fatal]
  - Paranoia [Fatal]
  - Paradoxical drug reaction [Fatal]
  - Aggression [Fatal]
  - Delirium [Fatal]
  - Rebound effect [Fatal]
  - Withdrawal syndrome [Fatal]
  - Fatigue [Fatal]
  - Sleep disorder [Fatal]
  - Condition aggravated [Fatal]
  - Agitation [Fatal]
  - Product use in unapproved indication [Fatal]
  - Off label use [Fatal]
